FAERS Safety Report 5773345-0 (Version None)
Quarter: 2008Q2

REPORT INFORMATION
  Report Type: 
  Country: None (occurrence: None)
  Receive Date: 20080616
  Receipt Date: 20080610
  Transmission Date: 20081010
  Serious: Yes (Life-Threatening, Hospitalization)
  Sender: FDA-Public Use
  Company Number: PHFR2006GB03736

PATIENT
  Age: 39 Year
  Sex: Female

DRUGS (4)
  1. VOLTAREN [Suspect]
     Dosage: UNK
  2. PLAVIX [Suspect]
     Dosage: 75MG
     Route: 048
  3. ACETYLSALICYLIC ACID SRT [Concomitant]
     Route: 065
  4. DICLOFENAC [Concomitant]
     Route: 065

REACTIONS (3)
  - CHEST PAIN [None]
  - LOSS OF CONSCIOUSNESS [None]
  - PERICARDIAL HAEMORRHAGE [None]
